FAERS Safety Report 21584422 (Version 3)
Quarter: 2022Q4

REPORT INFORMATION
  Report Type: Report from Study
  Country: US (occurrence: US)
  Receive Date: 20221111
  Receipt Date: 20221219
  Transmission Date: 20230113
  Serious: Yes (Death, Hospitalization)
  Sender: FDA-Public Use
  Company Number: US-002147023-NVSC2022US254980

PATIENT
  Age: 66 Year
  Sex: Male
  Weight: 72.9 kg

DRUGS (5)
  1. MYFORTIC [Suspect]
     Active Substance: MYCOPHENOLATE SODIUM
     Indication: Renal transplant
     Dosage: UNK
     Route: 065
  2. MYFORTIC [Suspect]
     Active Substance: MYCOPHENOLATE SODIUM
     Dosage: 360 MG, BID
     Route: 048
     Dates: start: 20130527, end: 20221107
  3. TACROLIMUS [Concomitant]
     Active Substance: TACROLIMUS
     Indication: Renal transplant
     Dosage: 3 MG, QD
     Route: 048
     Dates: start: 20130527, end: 20221107
  4. PREDNISONE [Concomitant]
     Active Substance: PREDNISONE
     Indication: Renal transplant
     Dosage: 5 MG, QD
     Route: 048
     Dates: start: 20130527, end: 20221107
  5. CALCITRIOL [Concomitant]
     Active Substance: CALCITRIOL
     Indication: Blood calcium decreased
     Dosage: 0.25 MG, QD
     Route: 048
     Dates: start: 20220527, end: 20221107

REACTIONS (4)
  - Pneumonia [Fatal]
  - Sepsis [Fatal]
  - Metabolic function test abnormal [Unknown]
  - Blood gases abnormal [Unknown]

NARRATIVE: CASE EVENT DATE: 20221107
